FAERS Safety Report 13183978 (Version 1)
Quarter: 2017Q1

REPORT INFORMATION
  Report Type: Spontaneous
  Country: CZ (occurrence: CZ)
  Receive Date: 20170203
  Receipt Date: 20170203
  Transmission Date: 20170428
  Serious: Yes (Other)
  Sender: FDA-Public Use
  Company Number: CZ-BEH-2017077750

PATIENT
  Age: 64 Year
  Sex: Male

DRUGS (4)
  1. HUMAN IMMUNOGLOBULIN SC (INN) [Suspect]
     Active Substance: HUMAN IMMUNOGLOBULIN G
     Indication: SECONDARY IMMUNODEFICIENCY
  2. ANTIBIOTICS [Concomitant]
     Active Substance: UNSPECIFIED INGREDIENT
  3. CORTICOSTEROIDS [Concomitant]
     Active Substance: CORTICOSTEROID NOS
     Dosage: 50 MG GRADUALLY RETRACTED BY 5 MG DAILY FOR 5 DAYS
     Route: 065
  4. MEPOLIZUMAB [Suspect]
     Active Substance: MEPOLIZUMAB
     Route: 065

REACTIONS (17)
  - Erythema [Recovering/Resolving]
  - Polymyalgia rheumatica [Recovering/Resolving]
  - Inflammatory marker increased [Recovering/Resolving]
  - Thrombocytosis [Recovering/Resolving]
  - Toothache [Recovering/Resolving]
  - Serum amyloid A protein increased [Recovering/Resolving]
  - White blood cell count decreased [Recovering/Resolving]
  - Soft tissue swelling [Recovering/Resolving]
  - Arthralgia [Recovering/Resolving]
  - Fatigue [Recovering/Resolving]
  - Mental disorder [Recovering/Resolving]
  - Iron deficiency anaemia [Recovering/Resolving]
  - Rheumatoid factor positive [Recovering/Resolving]
  - Joint swelling [Recovering/Resolving]
  - Skin lesion [Recovering/Resolving]
  - Red blood cell sedimentation rate increased [Recovering/Resolving]
  - Unevaluable event [Recovering/Resolving]
